FAERS Safety Report 23114468 (Version 6)
Quarter: 2023Q4

REPORT INFORMATION
  Report Type: Spontaneous
  Country: CA (occurrence: CA)
  Receive Date: 20231027
  Receipt Date: 20231226
  Transmission Date: 20240109
  Serious: Yes (Other)
  Sender: FDA-Public Use
  Company Number: CA-PFIZER INC-202300260205

PATIENT
  Age: 32 Year
  Sex: Female

DRUGS (1)
  1. SOMAVERT [Suspect]
     Active Substance: PEGVISOMANT
     Indication: Acromegaly
     Dosage: 10 MG, 1X/DAY
     Route: 058
     Dates: start: 20230926

REACTIONS (7)
  - Infected cyst [Recovering/Resolving]
  - Injection site bruising [Not Recovered/Not Resolved]
  - Injection site mass [Unknown]
  - Off label use [Unknown]
  - Off label use [Unknown]
  - Poor quality product administered [Unknown]
  - Liquid product physical issue [Unknown]

NARRATIVE: CASE EVENT DATE: 20230101
